FAERS Safety Report 5379656-5 (Version None)
Quarter: 2007Q3

REPORT INFORMATION
  Report Type: 
  Country: None (occurrence: None)
  Receive Date: 20070706
  Receipt Date: 20070625
  Transmission Date: 20080115
  Serious: Yes (Other)
  Sender: FDA-Public Use
  Company Number: PHBS2007JP10944

PATIENT
  Age: 22 Year
  Sex: Female
  Weight: 30 kg

DRUGS (6)
  1. CYCLOSPORINE [Suspect]
     Indication: RENAL TRANSPLANT
     Route: 065
  2. CYCLOSPORINE [Suspect]
     Route: 065
  3. BASILIXIMAB [Suspect]
     Indication: RENAL TRANSPLANT
     Route: 065
  4. PREDNISOLONE [Suspect]
     Indication: RENAL TRANSPLANT
     Route: 065
  5. CYCLOPHOSPHAMIDE [Suspect]
     Indication: RENAL TRANSPLANT
     Route: 065
  6. BETA BLOCKING AGENTS [Concomitant]
     Indication: CARDIAC FAILURE CHRONIC

REACTIONS (9)
  - ANURIA [None]
  - ASCITES [None]
  - BLOOD CREATININE INCREASED [None]
  - COMPLICATIONS OF TRANSPLANTED KIDNEY [None]
  - DIALYSIS [None]
  - LIVER DISORDER [None]
  - NEPHROPATHY TOXIC [None]
  - OEDEMA [None]
  - RENAL TUBULAR NECROSIS [None]
